FAERS Safety Report 5400127-1 (Version None)
Quarter: 2007Q3

REPORT INFORMATION
  Report Type: 
  Country: None (occurrence: None)
  Receive Date: 20070726
  Receipt Date: 20070726
  Transmission Date: 20080115
  Serious: Yes (Hospitalization)
  Sender: FDA-Public Use
  Company Number: None

PATIENT
  Sex: Male
  Weight: 105 kg

DRUGS (5)
  1. CYCLOPHOSPHAMIDE [Suspect]
     Dosage: 1750 MG
     Dates: end: 20070712
  2. DOXORUBICIN HYDROCHLORIDE [Suspect]
     Dosage: 115 MG
     Dates: end: 20070712
  3. PREDNISONE TAB [Suspect]
     Dosage: 1250 MG
     Dates: end: 20070716
  4. RITUXIMAB (MOAB C2B8 ANTI CD20, CHIMERIC) [Suspect]
     Dosage: 850 MG
     Dates: end: 20070712
  5. VINCRISTINE SULFATE [Suspect]
     Dosage: 2 MG
     Dates: end: 20070712

REACTIONS (4)
  - LOBAR PNEUMONIA [None]
  - NEUTROPHIL COUNT DECREASED [None]
  - PLATELET COUNT DECREASED [None]
  - WHITE BLOOD CELL COUNT DECREASED [None]
